FAERS Safety Report 10622771 (Version 1)
Quarter: 2014Q4

REPORT INFORMATION
  Report Type: Spontaneous
  Country: US (occurrence: None)
  Receive Date: 20141202
  Receipt Date: 20141202
  Transmission Date: 20150529
  Serious: Yes (Other)
  Sender: FDA-Public Use
  Company Number: None

PATIENT
  Age: 66 Year
  Sex: Female
  Weight: 129.28 kg

DRUGS (1)
  1. MONTELUKAST [Suspect]
     Active Substance: MONTELUKAST SODIUM
     Indication: HYPERSENSITIVITY
     Dosage: 1 TABLET
     Route: 048
     Dates: start: 20130731, end: 20141201

REACTIONS (9)
  - Abdominal pain upper [None]
  - Toothache [None]
  - Nausea [None]
  - Unevaluable event [None]
  - Pain in jaw [None]
  - Chromaturia [None]
  - Urine odour abnormal [None]
  - Headache [None]
  - Pain [None]

NARRATIVE: CASE EVENT DATE: 20141113
